FAERS Safety Report 4924151-8 (Version None)
Quarter: 2006Q1

REPORT INFORMATION
  Report Type: 
  Country: None (occurrence: None)
  Receive Date: 20060227
  Receipt Date: 20051122
  Transmission Date: 20060701
  Serious: No
  Sender: FDA-Public Use
  Company Number: US-GLAXOSMITHKLINE-A0583515A

PATIENT
  Age: 54 Year
  Sex: Female
  Weight: 80.9 kg

DRUGS (4)
  1. WELLBUTRIN XL [Suspect]
     Indication: DEPRESSION
     Dosage: 450MG PER DAY
     Route: 048
  2. VERAPAMIL [Concomitant]
     Indication: HYPERTENSION
     Dosage: 180MG UNKNOWN
     Route: 048
     Dates: start: 20040101
  3. ACEBUTOLOL [Concomitant]
     Indication: HYPERTENSION
     Dosage: 200MG TWICE PER DAY
     Route: 048
     Dates: start: 20050101
  4. ACCUPRIL [Concomitant]
     Indication: HYPERTENSION

REACTIONS (1)
  - BLOOD PRESSURE INCREASED [None]
